FAERS Safety Report 6745101-8 (Version None)
Quarter: 2010Q2

REPORT INFORMATION
  Report Type: 
  Country: None (occurrence: None)
  Receive Date: 20100527
  Receipt Date: 20100520
  Transmission Date: 20101027
  Serious: Yes (Hospitalization, Other)
  Sender: FDA-Public Use
  Company Number: US-AMGEN-QUU288606

PATIENT
  Sex: Female

DRUGS (1)
  1. ENBREL [Suspect]
     Indication: ANKYLOSING SPONDYLITIS
     Dates: start: 20040918

REACTIONS (15)
  - ABDOMINOPLASTY [None]
  - BACK PAIN [None]
  - CONSTIPATION [None]
  - CONTUSION [None]
  - CYSTITIS [None]
  - CYSTITIS INTERSTITIAL [None]
  - FAECAL INCONTINENCE [None]
  - FALL [None]
  - GASTROENTERITIS SALMONELLA [None]
  - LOSS OF CONSCIOUSNESS [None]
  - MOVEMENT DISORDER [None]
  - NECK PAIN [None]
  - PAIN [None]
  - RENAL FAILURE [None]
  - URINARY INCONTINENCE [None]
